FAERS Safety Report 5374410-2 (Version None)
Quarter: 2007Q2

REPORT INFORMATION
  Report Type: 
  Country: None (occurrence: None)
  Receive Date: 20070627
  Receipt Date: 20070627
  Transmission Date: 20071010
  Serious: No
  Sender: FDA-Public Use
  Company Number: None

PATIENT
  Age: 83 Year
  Sex: Male

DRUGS (1)
  1. TRAVOPROST [Suspect]
     Indication: GLAUCOMA
     Dosage: 1DROPS  EVERY DAY  EYE
     Route: 047
     Dates: start: 20070128, end: 20070430

REACTIONS (2)
  - EYE IRRITATION [None]
  - EYE PRURITUS [None]
